FAERS Safety Report 4804823-6 (Version None)
Quarter: 2005Q4

REPORT INFORMATION
  Report Type: 
  Country: None (occurrence: None)
  Receive Date: 20051017
  Receipt Date: 20051007
  Transmission Date: 20060501
  Serious: Yes (Disabling)
  Sender: FDA-Public Use
  Company Number: 2005090005

PATIENT
  Age: 52 Year
  Sex: Female

DRUGS (1)
  1. ASTELIN [Suspect]
     Indication: RHINITIS
     Dosage: 2 SPRAYS (274 MCG) BID, NASALLY
     Route: 045
     Dates: start: 20050808, end: 20050823

REACTIONS (4)
  - ANOSMIA [None]
  - DYSGEUSIA [None]
  - FEELING ABNORMAL [None]
  - NASAL DISORDER [None]
